FAERS Safety Report 11987521 (Version 1)
Quarter: 2016Q1

REPORT INFORMATION
  Report Type: Spontaneous
  Country: US (occurrence: None)
  Receive Date: 20160201
  Receipt Date: 20160201
  Transmission Date: 20160526
  Serious: No
  Sender: FDA-Public Use
  Company Number: None

PATIENT
  Age: 62 Year
  Sex: Female
  Weight: 49.9 kg

DRUGS (7)
  1. GABAPANTIN [Concomitant]
  2. REBEPRAZOLE [Concomitant]
  3. BENADRYL [Concomitant]
     Active Substance: DIPHENHYDRAMINE HYDROCHLORIDE
  4. REGLAN [Suspect]
     Active Substance: METOCLOPRAMIDE HYDROCHLORIDE
     Indication: NAUSEA
     Dosage: 1 TIME?AS NEEDED INTO A VEIN
  5. CLONAZEPAM. [Concomitant]
     Active Substance: CLONAZEPAM
  6. METOPROLOL. [Concomitant]
     Active Substance: METOPROLOL
  7. HORMONE CREAM [Concomitant]

REACTIONS (4)
  - Bruxism [None]
  - Muscle tightness [None]
  - Pain in jaw [None]
  - Tremor [None]

NARRATIVE: CASE EVENT DATE: 20151223
